FAERS Safety Report 8443678-8 (Version None)
Quarter: 2012Q2

REPORT INFORMATION
  Report Type: 
  Country: None (occurrence: None)
  Receive Date: 20120618
  Receipt Date: 20120607
  Transmission Date: 20120825
  Serious: Yes (Other)
  Sender: FDA-Public Use
  Company Number: FR-JNJFOC-20120605780

PATIENT
  Age: 50 Year
  Sex: Female
  Weight: 85 kg

DRUGS (2)
  1. STELARA [Suspect]
     Dosage: INITIATED ON AN UNSPECIFIED DATE, FOR ONE YEAR
     Route: 058
  2. STELARA [Suspect]
     Indication: PRODUCT USED FOR UNKNOWN INDICATION
     Dosage: NEXT ONE WAS PLANNED IN SEP-2012
     Route: 058
     Dates: start: 20120501, end: 20120501

REACTIONS (2)
  - ASTHENIA [None]
  - WEIGHT INCREASED [None]
